FAERS Safety Report 21503300 (Version 1)
Quarter: 2022Q4

REPORT INFORMATION
  Report Type: Spontaneous
  Country: AR (occurrence: AR)
  Receive Date: 20221025
  Receipt Date: 20221025
  Transmission Date: 20230112
  Serious: Yes (Other)
  Sender: FDA-Public Use
  Company Number: AR-PFIZER INC-PV202200087665

PATIENT
  Age: 57 Year
  Sex: Male
  Weight: 82.3 kg

DRUGS (1)
  1. XALKORI [Suspect]
     Active Substance: CRIZOTINIB
     Indication: Lung neoplasm malignant
     Dosage: 250 MG, 2X/DAY
     Dates: start: 20210221

REACTIONS (6)
  - Deep vein thrombosis [Recovered/Resolved]
  - Pulmonary embolism [Recovered/Resolved]
  - Hypokalaemia [Recovered/Resolved]
  - Visual impairment [Recovered/Resolved]
  - Sex hormone binding globulin decreased [Recovered/Resolved]
  - Hypogonadism [Not Recovered/Not Resolved]
